FAERS Safety Report 12225207 (Version 1)
Quarter: 2016Q1

REPORT INFORMATION
  Report Type: Spontaneous
  Country: US (occurrence: None)
  Receive Date: 20160330
  Receipt Date: 20160330
  Transmission Date: 20160526
  Serious: No
  Sender: FDA-Public Use
  Company Number: None

PATIENT
  Age: 84 Year
  Sex: Male
  Weight: 71.67 kg

DRUGS (10)
  1. LIPITOR [Concomitant]
     Active Substance: ATORVASTATIN CALCIUM
  2. HARVONI [Suspect]
     Active Substance: LEDIPASVIR\SOFOSBUVIR
     Dosage: 90-400 MG 84 PILLS 1 DAILY AT BEKDTIME MOUTH
     Route: 048
     Dates: start: 20151118, end: 20160209
  3. MILK THISTLE [Concomitant]
     Active Substance: MILK THISTLE
  4. CLOPIDOGREL + PLACEBO [Concomitant]
  5. ASPIRIN. [Concomitant]
     Active Substance: ASPIRIN
  6. COQ10 [Concomitant]
     Active Substance: UBIDECARENONE
  7. DIJOXSON [Concomitant]
  8. VITAMIN D [Concomitant]
     Active Substance: CHOLECALCIFEROL
  9. FOLATE [Concomitant]
     Active Substance: FOLATE SODIUM
  10. VITAMIN C [Concomitant]
     Active Substance: ASCORBIC ACID

REACTIONS (1)
  - Cerebrovascular accident [None]
